FAERS Safety Report 5357867-2 (Version None)
Quarter: 2007Q2

REPORT INFORMATION
  Report Type: 
  Country: None (occurrence: None)
  Receive Date: 20070614
  Receipt Date: 20070608
  Transmission Date: 20071010
  Serious: Yes (Hospitalization)
  Sender: FDA-Public Use
  Company Number: JP-MERCK-0705USA05003

PATIENT
  Age: 78 Year
  Sex: Female

DRUGS (7)
  1. PEPCID [Suspect]
     Indication: GASTRITIS
     Route: 048
     Dates: start: 20070115, end: 20070521
  2. PEPCID [Suspect]
     Indication: CONSTIPATION
     Route: 048
     Dates: start: 20070115, end: 20070521
  3. COZAAR [Concomitant]
     Route: 048
     Dates: end: 20070521
  4. AMLODIN [Concomitant]
     Route: 048
     Dates: end: 20070521
  5. ALFACALCIDOL [Suspect]
     Indication: OSTEOPOROSIS
     Route: 048
     Dates: start: 19961003, end: 20070521
  6. PAXIL [Suspect]
     Indication: ANXIETY DISORDER
     Route: 048
     Dates: start: 20070301, end: 20070521
  7. MAGNESIUM OXIDE [Concomitant]
     Route: 048
     Dates: start: 20070101, end: 20070521

REACTIONS (2)
  - ANAEMIA [None]
  - RENAL FAILURE [None]
